FAERS Safety Report 10203145 (Version 1)
Quarter: 2014Q2

REPORT INFORMATION
  Report Type: Report from Study
  Country: ES (occurrence: ES)
  Receive Date: 20140529
  Receipt Date: 20140529
  Transmission Date: 20141212
  Serious: Yes (Hospitalization, Other)
  Sender: FDA-Public Use
  Company Number: ES-ROCHE-1404682

PATIENT
  Age: 63 Year
  Sex: Male

DRUGS (6)
  1. MYCOPHENOLATE MOFETIL [Suspect]
     Indication: PRODUCT USED FOR UNKNOWN INDICATION
     Route: 065
  2. TACROLIMUS [Suspect]
     Indication: PRODUCT USED FOR UNKNOWN INDICATION
     Route: 065
  3. DACLIZUMAB [Suspect]
     Indication: PRODUCT USED FOR UNKNOWN INDICATION
     Route: 065
  4. METHYLPREDNISOLONE [Suspect]
     Indication: PRODUCT USED FOR UNKNOWN INDICATION
     Route: 065
  5. PREDNISOLONE [Concomitant]
  6. CICLOSPORIN [Concomitant]

REACTIONS (13)
  - Renal failure chronic [Unknown]
  - Atrial fibrillation [Unknown]
  - Haemodynamic instability [Unknown]
  - Pneumonia [Unknown]
  - Bronchitis [Unknown]
  - Bacterial disease carrier [Unknown]
  - Ophthalmic herpes zoster [Unknown]
  - Polyomavirus test positive [Unknown]
  - Epstein-Barr virus infection [Unknown]
  - Viraemia [Unknown]
  - Pneumonia [Unknown]
  - Hepatitis E [Unknown]
  - Bronchitis bacterial [Unknown]
